FAERS Safety Report 21656628 (Version 1)
Quarter: 2022Q4

REPORT INFORMATION
  Report Type: Spontaneous
  Country: US (occurrence: None)
  Receive Date: 20221128
  Receipt Date: 20221128
  Transmission Date: 20230113
  Serious: No
  Sender: FDA-Public Use
  Company Number: None

PATIENT
  Sex: Male

DRUGS (1)
  1. STELARA [Suspect]
     Active Substance: USTEKINUMAB
     Indication: Colitis ulcerative
     Dosage: OTHER QUANTITY : 90/1 MG/ML;?OTHER FREQUENCY : EVERY 8 WEEKS;?
     Route: 058

REACTIONS (1)
  - Therapy non-responder [None]
